FAERS Safety Report 5241752-0 (Version None)
Quarter: 2007Q1

REPORT INFORMATION
  Report Type: 
  Country: None (occurrence: None)
  Receive Date: 20070220
  Receipt Date: 20070212
  Transmission Date: 20070707
  Serious: Yes (Death, Other)
  Sender: FDA-Public Use
  Company Number: US-ELI_LILLY_AND_COMPANY-US200702002229

PATIENT
  Age: 60 Year
  Sex: Male

DRUGS (4)
  1. GEMZAR [Suspect]
     Indication: BLADDER CANCER STAGE IV
     Dosage: 2000 MG, OTHER
     Route: 042
     Dates: start: 20051001, end: 20050101
  2. GEMZAR [Suspect]
     Dosage: 1500 MG, OTHER
     Route: 042
     Dates: start: 20050101, end: 20050101
  3. GEMZAR [Suspect]
     Dosage: 1000 MG, OTHER
     Route: 042
     Dates: start: 20050101, end: 20051201
  4. CISPLATIN [Concomitant]
     Indication: BLADDER CANCER STAGE IV
     Dosage: 70 MG, OTHER
     Route: 042

REACTIONS (5)
  - MALIGNANT NEOPLASM PROGRESSION [None]
  - SCLERODERMA [None]
  - SEPSIS [None]
  - THROMBOCYTOPENIA [None]
  - VASCULITIS NECROTISING [None]
